FAERS Safety Report 8530741-6 (Version None)
Quarter: 2012Q3

REPORT INFORMATION
  Report Type: 
  Country: None (occurrence: None)
  Receive Date: 20120723
  Receipt Date: 20120718
  Transmission Date: 20120928
  Serious: Yes (Other)
  Sender: FDA-Public Use
  Company Number: PHHY2012AU046428

PATIENT
  Sex: Female

DRUGS (6)
  1. ZOLEDRONOC ACID [Suspect]
     Dosage: 5 MG, UNK
     Route: 042
     Dates: start: 20110421
  2. METHOTREXATE [Concomitant]
     Dosage: 10 MG PER WEEK
     Route: 048
     Dates: start: 20120614
  3. OSTELIN [Concomitant]
     Dosage: 1000 IU, DAILY
     Route: 048
  4. ZOLEDRONOC ACID [Suspect]
     Dosage: 5 MG, UNK
     Route: 042
     Dates: start: 20120529
  5. PREDNISONE [Concomitant]
     Dosage: 5 MG, DAILY
     Route: 048
  6. MOBIC [Concomitant]
     Dosage: 15 MG, DAILY
     Route: 048

REACTIONS (2)
  - ADVERSE DRUG REACTION [None]
  - ARTHRITIS [None]
